FAERS Safety Report 12667935 (Version 3)
Quarter: 2025Q4

REPORT INFORMATION
  Report Type: Report from Study
  Country: IN (occurrence: IN)
  Receive Date: 20160819
  Receipt Date: 20251023
  Transmission Date: 20260118
  Serious: Yes (Death, Life-Threatening, Other)
  Sender: SANOFI AVENTIS
  Company Number: IN-SA-2016SA152320

PATIENT
  Age: 4 Year
  Sex: Male

DRUGS (13)
  1. CYCLOPHOSPHAMIDE [Suspect]
     Active Substance: CYCLOPHOSPHAMIDE
     Indication: Prophylaxis against graft versus host disease
     Dosage: 50 MG/KG
  2. FLUDARABINE PHOSPHATE [Suspect]
     Active Substance: FLUDARABINE PHOSPHATE
     Indication: Acute lymphocytic leukaemia
     Dosage: 30 MG/M2
  3. FLUDARABINE PHOSPHATE [Suspect]
     Active Substance: FLUDARABINE PHOSPHATE
     Indication: Bone marrow conditioning regimen
  4. MYCOPHENOLATE MOFETIL [Suspect]
     Active Substance: MYCOPHENOLATE MOFETIL
     Indication: Prophylaxis against graft versus host disease
     Dosage: 15 MG/KG,TID
     Route: 048
  5. BUSULFAN [Suspect]
     Active Substance: BUSULFAN
     Indication: Acute lymphocytic leukaemia
     Dosage: .8 MG/KG,Q6H
  6. BUSULFAN [Suspect]
     Active Substance: BUSULFAN
     Indication: Bone marrow conditioning regimen
  7. MELPHALAN [Suspect]
     Active Substance: MELPHALAN
     Indication: Acute lymphocytic leukaemia
     Dosage: 140 MG/M2, QD
  8. MELPHALAN [Suspect]
     Active Substance: MELPHALAN
     Indication: Bone marrow conditioning regimen
  9. CYCLOSPORINE [Suspect]
     Active Substance: CYCLOSPORINE
     Indication: Prophylaxis against graft versus host disease
     Dosage: 3 MG/KG, BID
     Route: 042
  10. CYCLOSPORINE [Suspect]
     Active Substance: CYCLOSPORINE
     Dosage: UNK
     Route: 048
  11. LEVETIRACETAM [Concomitant]
     Active Substance: LEVETIRACETAM
     Dosage: 10 MG/KG,BID
  12. URSODIOL [Concomitant]
     Active Substance: URSODIOL
     Dosage: 15 MG/KG, TID
  13. ACYCLOVIR [Concomitant]
     Active Substance: ACYCLOVIR
     Dosage: UNK

REACTIONS (7)
  - Acute graft versus host disease [Unknown]
  - Drug ineffective [Unknown]
  - Haemophagocytic lymphohistiocytosis [Fatal]
  - Bacterial infection [Fatal]
  - Cytomegalovirus infection [Unknown]
  - Rotavirus infection [Unknown]
  - Off label use [Unknown]
